FAERS Safety Report 11529823 (Version 1)
Quarter: 2015Q3

REPORT INFORMATION
  Report Type: Report from Study
  Country: US (occurrence: US)
  Receive Date: 20150921
  Receipt Date: 20150921
  Transmission Date: 20151125
  Serious: Yes (Life-Threatening, Disabling)
  Sender: FDA-Public Use
  Company Number: US-GLAXOSMITHKLINE-US2015GSK133519

PATIENT
  Age: 49 Year
  Sex: Male
  Weight: 86.62 kg

DRUGS (5)
  1. TRAMETINIB [Suspect]
     Active Substance: TRAMETINIB
     Indication: PAPILLARY THYROID CANCER
     Dosage: 2 MG, QD
     Route: 048
     Dates: start: 20130115
  2. OXYCODONE [Concomitant]
     Active Substance: OXYCODONE
     Dosage: UNK
     Route: 048
  3. DABRAFENIB [Suspect]
     Active Substance: DABRAFENIB
     Indication: PAPILLARY THYROID CANCER
     Dosage: 150 MG, BID
     Route: 048
     Dates: start: 20130115
  4. QUETIAPINE [Concomitant]
     Active Substance: QUETIAPINE
     Dosage: 25 MG, UNK
     Route: 048
  5. OMEPRAZOLE. [Concomitant]
     Active Substance: OMEPRAZOLE
     Dosage: 40 MG, UNK
     Route: 048

REACTIONS (1)
  - Hypertension [Recovering/Resolving]

NARRATIVE: CASE EVENT DATE: 20130412
